FAERS Safety Report 5907044-9 (Version None)
Quarter: 2008Q4

REPORT INFORMATION
  Report Type: 
  Country: None (occurrence: None)
  Receive Date: 20081002
  Receipt Date: 20081002
  Transmission Date: 20090506
  Serious: Yes (Other)
  Sender: FDA-Public Use
  Company Number: None

PATIENT
  Age: 74 Year
  Sex: Female
  Weight: 72.5755 kg

DRUGS (1)
  1. PANAFIL OINTMENT 30 G DPT LABORATORIES [Suspect]
     Indication: DEBRIDEMENT
     Dosage: 3X DAILY AFTER CLEANING WOUND 2X DAILY TOP
     Route: 061
     Dates: start: 20080927, end: 20081001

REACTIONS (2)
  - APPLICATION SITE ERYTHEMA [None]
  - APPLICATION SITE SWELLING [None]
